APPROVED DRUG PRODUCT: PROPOXYPHENE NAPSYLATE AND ACETAMINOPHEN
Active Ingredient: ACETAMINOPHEN; PROPOXYPHENE NAPSYLATE
Strength: 325MG;50MG
Dosage Form/Route: TABLET;ORAL
Application: A074843 | Product #002
Applicant: VINTAGE PHARMACEUTICALS INC
Approved: Feb 15, 2001 | RLD: No | RS: No | Type: DISCN